FAERS Safety Report 16264009 (Version 1)
Quarter: 2019Q2

REPORT INFORMATION
  Report Type: Spontaneous
  Country: US (occurrence: US)
  Receive Date: 20190328
  Receipt Date: 20190328
  Transmission Date: 20190711
  Serious: No
  Sender: FDA-Public Use
  Company Number: None

PATIENT

DRUGS (1)
  1. DEBROX [Suspect]
     Active Substance: CARBAMIDE PEROXIDE

REACTIONS (6)
  - Product packaging confusion [None]
  - Instillation site erythema [None]
  - Instillation site swelling [None]
  - Wrong product administered [None]
  - Incorrect route of product administration [None]
  - Instillation site pain [None]

NARRATIVE: CASE EVENT DATE: 2019
